FAERS Safety Report 16490394 (Version 1)
Quarter: 2019Q3

REPORT INFORMATION
  Report Type: Spontaneous
  Country: US (occurrence: US)
  Receive Date: 20190627
  Receipt Date: 20190627
  Transmission Date: 20191004
  Serious: Yes (Life-Threatening, Hospitalization, Disabling)
  Sender: FDA-Public Use
  Company Number: None

PATIENT
  Age: 50 Year
  Sex: Female
  Weight: 55.35 kg

DRUGS (29)
  1. VITAMIN B SUBLINGUAL COMPLEX +B12 [Concomitant]
  2. N-ACETLY-L-CYSTEINE [Concomitant]
  3. BENGAY ARTHRITIS PAIN RELIEVING [Concomitant]
     Active Substance: MENTHOL\METHYL SALICYLATE
  4. FLECAOMODE [Concomitant]
  5. FISH OIL [Concomitant]
     Active Substance: FISH OIL
  6. VITAMIN C [Concomitant]
     Active Substance: ASCORBIC ACID
  7. VIT D [Concomitant]
     Active Substance: VITAMIN D NOS
  8. GABA [Concomitant]
     Active Substance: HOMEOPATHICS
  9. CBD OIL [Concomitant]
     Active Substance: CANNABIDIOL\HERBALS
  10. CBD ESSENTIAL OIL OINTMENT [Concomitant]
  11. KLONOPIN [Suspect]
     Active Substance: CLONAZEPAM
     Indication: POST-TRAUMATIC STRESS DISORDER
     Dates: start: 20090215, end: 20190512
  12. PROTONIX [Concomitant]
     Active Substance: PANTOPRAZOLE SODIUM
  13. ALOE VERA GEL [Concomitant]
     Active Substance: ALOE VERA LEAF
  14. ZINC. [Concomitant]
     Active Substance: ZINC
  15. ARNICA GEL [Concomitant]
  16. MAALOX ANTACID [Concomitant]
     Active Substance: ALUMINUM HYDROXIDE\DIMETHICONE\MAGNESIUM HYDROXIDE
  17. TUMS [Concomitant]
     Active Substance: CALCIUM CARBONATE
  18. FLKAX OIL [Concomitant]
  19. MAGNESIUM FOAM [Concomitant]
  20. GAVISCON [Concomitant]
     Active Substance: ALUMINUM HYDROXIDE\MAGNESIUM CARBONATE
  21. INOSITOL [Concomitant]
     Active Substance: INOSITOL
  22. MAGNESIUM BISGLYCINATE [Concomitant]
  23. 5-HTP [Concomitant]
  24. KLONOPIN [Suspect]
     Active Substance: CLONAZEPAM
     Indication: CLAUSTROPHOBIA
     Dates: start: 20090215, end: 20190512
  25. LEVOTHYROXINE. [Concomitant]
     Active Substance: LEVOTHYROXINE
  26. TIAGABINE HYDROXYZINE BENZTROPINE [Concomitant]
  27. KLONOPIN [Suspect]
     Active Substance: CLONAZEPAM
     Indication: VICTIM OF ABUSE
     Dates: start: 20090215, end: 20190512
  28. KLONOPIN [Suspect]
     Active Substance: CLONAZEPAM
     Indication: DRUG WITHDRAWAL SYNDROME
     Dates: start: 20090215, end: 20190512
  29. CARAFATE ZIPRASODONE [Concomitant]

REACTIONS (5)
  - Respiration abnormal [None]
  - Drug dependence [None]
  - Mental disorder [None]
  - Overdose [None]
  - Malaise [None]

NARRATIVE: CASE EVENT DATE: 20170516
